FAERS Safety Report 8000745-0 (Version None)
Quarter: 2011Q4

REPORT INFORMATION
  Report Type: 
  Country: None (occurrence: None)
  Receive Date: 20111216
  Receipt Date: 20111214
  Transmission Date: 20120403
  Serious: Yes (Hospitalization, Other)
  Sender: FDA-Public Use
  Company Number: 2009SP043080

PATIENT
  Age: 25 Year
  Sex: Female
  Weight: 58.9676 kg

DRUGS (2)
  1. NUVARING [Suspect]
     Indication: PRODUCT USED FOR UNKNOWN INDICATION
     Dosage: ;VAG
     Route: 067
     Dates: start: 20050401, end: 20051101
  2. NJECTABLE CONTRACEPTION [Suspect]
     Indication: PRODUCT USED FOR UNKNOWN INDICATION

REACTIONS (27)
  - DEPRESSION [None]
  - BODY TEMPERATURE INCREASED [None]
  - RHINITIS ALLERGIC [None]
  - GASTROOESOPHAGEAL REFLUX DISEASE [None]
  - MUSCULOSKELETAL CHEST PAIN [None]
  - CERVICAL DYSPLASIA [None]
  - PULMONARY INFARCTION [None]
  - LUNG NEOPLASM [None]
  - SLEEP DISORDER [None]
  - ACCIDENT AT WORK [None]
  - OEDEMA PERIPHERAL [None]
  - HEADACHE [None]
  - PULMONARY EMBOLISM [None]
  - COLITIS ULCERATIVE [None]
  - BRONCHITIS [None]
  - CANDIDIASIS [None]
  - BLOOD CHOLESTEROL INCREASED [None]
  - UPPER LIMB FRACTURE [None]
  - OROPHARYNGEAL PAIN [None]
  - VICTIM OF SEXUAL ABUSE [None]
  - POSTPARTUM STRESS DISORDER [None]
  - DYSTHYMIC DISORDER [None]
  - JAUNDICE [None]
  - PAPILLOMA VIRAL INFECTION [None]
  - SUICIDAL IDEATION [None]
  - PAIN IN EXTREMITY [None]
  - ATELECTASIS [None]
